FAERS Safety Report 8071490-0 (Version None)
Quarter: 2012Q1

REPORT INFORMATION
  Report Type: 
  Country: None (occurrence: None)
  Receive Date: 20120125
  Receipt Date: 20120120
  Transmission Date: 20120608
  Serious: Yes (Death, Hospitalization, Other)
  Sender: FDA-Public Use
  Company Number: FR-PFIZER INC-2012009219

PATIENT
  Age: 50 Year
  Sex: Female

DRUGS (2)
  1. PACLITAXEL [Concomitant]
     Indication: MALIGNANT PERITONEAL NEOPLASM
     Dosage: 175 MG/M2, CYCLIC
  2. CARBOPLATIN [Suspect]
     Indication: MALIGNANT PERITONEAL NEOPLASM
     Dosage: 360 MG/M2, CYCLIC (EVERY THREE WEEKS)

REACTIONS (5)
  - NEUROTOXICITY [None]
  - MITOCHONDRIAL CYTOPATHY [None]
  - LACTIC ACIDOSIS [None]
  - HEPATIC FAILURE [None]
  - RENAL INJURY [None]
